FAERS Safety Report 17817269 (Version 2)
Quarter: 2021Q1

REPORT INFORMATION
  Report Type: Spontaneous
  Country: GB (occurrence: GB)
  Receive Date: 20200522
  Receipt Date: 20210122
  Transmission Date: 20210419
  Serious: Yes (Death, Hospitalization, Other)
  Sender: FDA-Public Use
  Company Number: GB-MYLANLABS-2020M1027351

PATIENT
  Age: 54 Year
  Sex: Female
  Weight: 74 kg

DRUGS (37)
  1. RAMIPRIL. [Concomitant]
     Active Substance: RAMIPRIL
     Dosage: UNK
  2. TIGECYCLINE. [Interacting]
     Active Substance: TIGECYCLINE
     Indication: LUNG ABSCESS
     Dosage: 50 MILLIGRAM, BID
     Route: 042
     Dates: start: 20200125, end: 20200205
  3. AVIBACTAM [Interacting]
     Active Substance: AVIBACTAM
     Indication: PRODUCT USED FOR UNKNOWN INDICATION
     Dosage: 4.5 GRAM, QD; 1.5 GRAMS TID
     Dates: start: 20200131
  4. AVIBACTAM [Interacting]
     Active Substance: AVIBACTAM
     Dosage: UNK
  5. CEFTAZIDIME. [Interacting]
     Active Substance: CEFTAZIDIME
     Indication: PRODUCT USED FOR UNKNOWN INDICATION
     Dosage: 4.5 GRAM, QD; 1.5 GRAM TID
     Dates: start: 20200131
  6. CEFTAZIDIME. [Interacting]
     Active Substance: CEFTAZIDIME
     Dosage: 7.5 GRAM, QD; 2.5 GRAM TID
  7. CHLORPHENAMINE [Concomitant]
     Active Substance: CHLORPHENIRAMINE MALEATE
     Dosage: UNK
  8. DOSULEPIN HYDROCHLORIDE [Concomitant]
     Active Substance: DOTHIEPIN HYDROCHLORIDE
     Indication: DEPRESSION
     Dosage: 150 MILLIGRAM, QD (REDUCED TO 75MG OD ON ADMISSION.)
  9. NYSTATIN. [Concomitant]
     Active Substance: NYSTATIN
     Dosage: UNK
  10. AVIBACTAM [Interacting]
     Active Substance: AVIBACTAM
     Dosage: 3.75 UNK
  11. CEFTAZIDIME. [Interacting]
     Active Substance: CEFTAZIDIME
     Dosage: 6 GRAM, QD
  12. TACROLIMUS. [Concomitant]
     Active Substance: TACROLIMUS
     Dosage: 6 MILLIGRAM, QD; 3 MILLIGRAM BID
  13. TINZAPARIN SODIUM [Concomitant]
     Active Substance: TINZAPARIN SODIUM
     Dosage: UNK
  14. MORPHINE SULFATE. [Concomitant]
     Active Substance: MORPHINE SULFATE
     Dosage: UNK
  15. PARACETAMOL [Concomitant]
     Active Substance: ACETAMINOPHEN
     Dosage: 4 GRAM, QD; 1 GRAM QID
  16. PRAVASTATIN. [Concomitant]
     Active Substance: PRAVASTATIN
     Dosage: 40 MILLIGRAM, QD (EACH NIGHT, HELD (PANCREATITIS))
  17. GABAPENTIN. [Concomitant]
     Active Substance: GABAPENTIN
     Dosage: 600 MILLIGRAM, QD; 300 MILLIGRAM BID
  18. ONDANSETRON HYDROCHLORIDE. [Concomitant]
     Active Substance: ONDANSETRON HYDROCHLORIDE
     Dosage: UNK
  19. OMEPRAZOLE. [Concomitant]
     Active Substance: OMEPRAZOLE
     Dosage: 80 MILLIGRAM, QD; 40 MILLIGRAM BID
  20. AZITHROMYCIN ANHYDROUS. [Interacting]
     Active Substance: AZITHROMYCIN ANHYDROUS
     Indication: PRODUCT USED FOR UNKNOWN INDICATION
     Dosage: 500 MILLIGRAM, QD
     Route: 042
  21. TRIMOXAZOLE?BC [Concomitant]
     Dosage: 480 MILLIGRAM, QD
  22. LORAZEPAM. [Concomitant]
     Active Substance: LORAZEPAM
     Dosage: UNK
  23. RANITIDINE. [Concomitant]
     Active Substance: RANITIDINE
     Dosage: 600 MILLIGRAM, QD; 300 MILLIGRAM BID
  24. MEROPENEM. [Interacting]
     Active Substance: MEROPENEM
     Indication: PRODUCT USED FOR UNKNOWN INDICATION
     Dosage: 6 GRAM, QD; 2 GRAM TID
  25. PREDNISOLONE. [Concomitant]
     Active Substance: PREDNISOLONE
     Dosage: UNK
     Route: 065
  26. CALCICHEW D3 [Concomitant]
     Active Substance: CALCIUM\CHOLECALCIFEROL
     Dosage: TBD
  27. COTRIMOXAZOLE [Concomitant]
     Active Substance: SULFAMETHOXAZOLE\TRIMETHOPRIM
     Dosage: 480 MILLIGRAM, QD
  28. PREDNISONE. [Concomitant]
     Active Substance: PREDNISONE
     Dosage: 15 MILLIGRAM, QD (REDUCED TO 10MG OM ON ADMISSION)
  29. TIGECYCLINE. [Interacting]
     Active Substance: TIGECYCLINE
     Indication: MYCOBACTERIAL INFECTION
     Dosage: 100 MILLIGRAM, QD
     Route: 042
     Dates: start: 20200128, end: 20200205
  30. AZITHROMYCIN ANHYDROUS. [Suspect]
     Active Substance: AZITHROMYCIN ANHYDROUS
     Indication: PRODUCT USED FOR UNKNOWN INDICATION
     Dosage: 500 MILLIGRAM, QD
     Route: 048
     Dates: start: 20200130
  31. MEROPENEM. [Interacting]
     Active Substance: MEROPENEM
     Dosage: 4 GRAM, QD; 2 GRAM, BID
     Dates: start: 20200131
  32. OMEPRAZOLE SODIUM [Concomitant]
     Active Substance: OMEPRAZOLE SODIUM
     Dosage: UNK
  33. CETRIZINE [Concomitant]
     Active Substance: CETIRIZINE HYDROCHLORIDE
     Dosage: 10 MILLIGRAM, QD (EACH MORNING)
  34. AVIBACTAM [Interacting]
     Active Substance: AVIBACTAM
     Dosage: 7.5 GRAM, QD; 2.5 GRAMS TID
     Dates: start: 20200131
  35. LEVOMEPROMAZINE [Concomitant]
     Active Substance: LEVOMEPROMAZINE
     Dosage: UNK
  36. VALGANCICLOVIR. [Concomitant]
     Active Substance: VALGANCICLOVIR
     Dosage: 450 MILLIGRAM, QOD
  37. CEFTAZIDIME. [Concomitant]
     Active Substance: CEFTAZIDIME
     Dosage: 2 GRAM, TID

REACTIONS (6)
  - Pancreatitis acute [Fatal]
  - Cardiac arrest [Not Recovered/Not Resolved]
  - Drug interaction [Unknown]
  - Pulseless electrical activity [Not Recovered/Not Resolved]
  - Abdominal pain upper [Not Recovered/Not Resolved]
  - Nausea [Not Recovered/Not Resolved]

NARRATIVE: CASE EVENT DATE: 20200205
